FAERS Safety Report 24343869 (Version 1)
Quarter: 2024Q3

REPORT INFORMATION
  Report Type: Spontaneous
  Country: US (occurrence: US)
  Receive Date: 20240920
  Receipt Date: 20240920
  Transmission Date: 20241017
  Serious: No
  Sender: ABBVIE
  Company Number: US-ABBVIE-5929802

PATIENT
  Sex: Male

DRUGS (1)
  1. VENCLEXTA [Suspect]
     Active Substance: VENETOCLAX
     Indication: Neoplasm malignant
     Dosage: TAKE 4 TABLET(S) BY MOUTH EVERY DAY WITH A MEAL AND WATER AT?THE SAME TIME EACH DAY (SWALLOW WHOLE,
     Route: 048

REACTIONS (1)
  - Tinnitus [Unknown]
